FAERS Safety Report 15194711 (Version 4)
Quarter: 2020Q1

REPORT INFORMATION
  Report Type: Spontaneous
  Country: GB (occurrence: GB)
  Receive Date: 20180725
  Receipt Date: 20200129
  Transmission Date: 20200409
  Serious: Yes (Other)
  Sender: FDA-Public Use
  Company Number: GB-GLAXOSMITHKLINE-GB2018128222

PATIENT
  Age: 42 Year
  Sex: Female
  Weight: 64 kg

DRUGS (4)
  1. LANSOPRAZOLE. [Suspect]
     Active Substance: LANSOPRAZOLE
     Indication: ABDOMINAL PAIN UPPER
     Dosage: 30 MG, QD
     Route: 065
     Dates: start: 20160714, end: 20160717
  2. BRUFEN (IBUPROFEN) [Concomitant]
     Active Substance: IBUPROFEN
     Indication: PRODUCT USED FOR UNKNOWN INDICATION
     Dosage: UNK
     Route: 065
  3. OMEPRAZOLE. [Suspect]
     Active Substance: OMEPRAZOLE
     Indication: PRODUCT USED FOR UNKNOWN INDICATION
     Dosage: UNK
     Route: 065
  4. COCODAMOL [Suspect]
     Active Substance: ACETAMINOPHEN\CODEINE PHOSPHATE
     Indication: ABDOMINAL PAIN UPPER
     Dosage: 30/500. 1-2 FOUR TIMES A DAY
     Route: 065
     Dates: start: 20160714

REACTIONS (7)
  - Pruritus [Unknown]
  - Erythema [Unknown]
  - Periorbital oedema [Not Recovered/Not Resolved]
  - Constipation [Unknown]
  - Inflammation [Unknown]
  - Urticaria [Unknown]
  - Pain [Unknown]

NARRATIVE: CASE EVENT DATE: 201607
